FAERS Safety Report 6014677-0 (Version None)
Quarter: 2008Q4

REPORT INFORMATION
  Report Type: 
  Country: None (occurrence: None)
  Receive Date: 20081219
  Receipt Date: 20081204
  Transmission Date: 20090506
  Serious: Yes (Hospitalization, Other)
  Sender: FDA-Public Use
  Company Number: KR-BRISTOL-MYERS SQUIBB COMPANY-14043046

PATIENT
  Age: 36 Year
  Sex: Male

DRUGS (5)
  1. ABILIFY [Suspect]
     Indication: SCHIZOPHRENIA
     Dosage: 26JUN-23JUL07,5MG;24JUL-31JUL07,10MG.
     Route: 048
     Dates: start: 20070626, end: 20070731
  2. QUETIAPINE FUMARATE [Concomitant]
     Dosage: (400MG)26JUN07 TO 23JUL07 ;(200MG)24JUN07-31JUL07-5 WEEKS 3 DAYS
     Route: 048
     Dates: start: 20070624
  3. BENZTROPINE MESYLATE [Concomitant]
     Route: 048
     Dates: start: 20070626, end: 20070731
  4. LORAZEPAM [Concomitant]
     Route: 048
     Dates: start: 20070724, end: 20070731
  5. PROPRANOLOL [Concomitant]
     Route: 048
     Dates: start: 20070724, end: 20070731

REACTIONS (3)
  - AGGRESSION [None]
  - INAPPROPRIATE AFFECT [None]
  - SOLILOQUY [None]
